FAERS Safety Report 6376534-X (Version None)
Quarter: 2009Q3

REPORT INFORMATION
  Report Type: 
  Country: None (occurrence: None)
  Receive Date: 20090925
  Receipt Date: 20090915
  Transmission Date: 20100115
  Serious: Yes (Death, Hospitalization)
  Sender: FDA-Public Use
  Company Number: JP-PFIZER INC-2009221811

PATIENT
  Age: 58 Year

DRUGS (7)
  1. SUNITINIB MALATE [Suspect]
     Indication: BREAST CANCER
     Dosage: 37.5 MG, 1X/DAY
     Route: 048
     Dates: start: 20081023, end: 20081203
  2. SUNITINIB MALATE [Suspect]
     Dosage: 25 MG, 1X/DAY
     Route: 048
     Dates: start: 20081222, end: 20081224
  3. SUNITINIB MALATE [Suspect]
     Dosage: 25 MG, 1X/DAY
     Route: 048
     Dates: start: 20090105, end: 20090204
  4. SUNITINIB MALATE [Suspect]
     Dosage: 25 MG, 1X/DAY
     Route: 048
     Dates: start: 20090216, end: 20090318
  5. SUNITINIB MALATE [Suspect]
     Dosage: 25 MG, 1X/DAY
     Route: 048
     Dates: start: 20090330, end: 20090429
  6. GABAPENTIN [Suspect]
     Dosage: 200 MG, 1X/DAY
     Route: 048
     Dates: start: 20090105
  7. TORASEMIDE [Suspect]
     Dosage: 8 MG, 1X/DAY
     Route: 048
     Dates: start: 20090330, end: 20090606

REACTIONS (1)
  - PLEURAL EFFUSION [None]
